FAERS Safety Report 23718145 (Version 2)
Quarter: 2024Q2

REPORT INFORMATION
  Report Type: Report from Study
  Country: US (occurrence: US)
  Receive Date: 20240408
  Receipt Date: 20240412
  Transmission Date: 20240716
  Serious: Yes (Other)
  Sender: FDA-Public Use
  Company Number: US-BEIGENE-BGN-2024-004933

PATIENT

DRUGS (1)
  1. BRUKINSA [Suspect]
     Active Substance: ZANUBRUTINIB
     Indication: Chronic lymphocytic leukaemia
     Dosage: 320 MILLIGRAM
     Route: 048
     Dates: start: 20240113

REACTIONS (6)
  - Cataract [Unknown]
  - Ocular melanoma [Unknown]
  - Limb injury [Unknown]
  - Skin ulcer [Unknown]
  - Blood blister [Unknown]
  - Rash [Unknown]
